FAERS Safety Report 5323101-2 (Version None)
Quarter: 2007Q2

REPORT INFORMATION
  Report Type: 
  Country: None (occurrence: None)
  Receive Date: 20070507
  Receipt Date: 20070420
  Transmission Date: 20071010
  Serious: Yes (Other)
  Sender: FDA-Public Use
  Company Number: ACO_0332_2007

PATIENT

DRUGS (1)
  1. TERNELIN (TERNELIN) [Suspect]
     Dosage: 1 MG QOD ORAL
     Route: 048

REACTIONS (1)
  - RESPIRATORY DEPRESSION [None]
